FAERS Safety Report 4935043-2 (Version None)
Quarter: 2006Q1

REPORT INFORMATION
  Report Type: 
  Country: None (occurrence: None)
  Receive Date: 20060303
  Receipt Date: 20060303
  Transmission Date: 20060701
  Serious: Yes (Hospitalization)
  Sender: FDA-Public Use
  Company Number: None

PATIENT
  Sex: Female
  Weight: 78.4723 kg

DRUGS (4)
  1. ADVAIR DISKUS 250/50 [Suspect]
     Indication: ASTHMA
     Dosage: 1 PUFF A.M. 1 X DAY PO
     Route: 048
     Dates: start: 20040601, end: 20060228
  2. LAMISIL [Concomitant]
  3. CLARITIN [Concomitant]
  4. BECONASE [Concomitant]

REACTIONS (2)
  - MUSCLE SPASMS [None]
  - SUPRAVENTRICULAR TACHYCARDIA [None]
